FAERS Safety Report 18957964 (Version 1)
Quarter: 2021Q1

REPORT INFORMATION
  Report Type: Spontaneous
  Country: US (occurrence: US)
  Receive Date: 20210302
  Receipt Date: 20210302
  Transmission Date: 20210420
  Serious: No
  Sender: FDA-Public Use
  Company Number: US-BEH-2021129042

PATIENT
  Age: 28 Year
  Sex: Female

DRUGS (1)
  1. HIZENTRA [Suspect]
     Active Substance: HUMAN IMMUNOGLOBULIN G
     Indication: HUMORAL IMMUNE DEFECT
     Dosage: 4 GRAM, QW
     Route: 058
     Dates: start: 202010

REACTIONS (2)
  - Infusion site bruising [Unknown]
  - Dyspnoea [Unknown]
